FAERS Safety Report 8844866 (Version 2)
Quarter: 2013Q2

REPORT INFORMATION
  Report Type: Spontaneous
  Country: CA (occurrence: CA)
  Receive Date: 20121017
  Receipt Date: 20130529
  Transmission Date: 20140414
  Serious: Yes (Death)
  Sender: FDA-Public Use
  Company Number: CA-ELI_LILLY_AND_COMPANY-CA201210002038

PATIENT
  Age: 9 Year
  Sex: Male

DRUGS (14)
  1. STRATTERA [Suspect]
     Dosage: 40 MG, UNKNOWN
  2. ZYPREXA [Suspect]
     Dosage: 5 MG, QD
  3. ZYPREXA [Suspect]
     Dosage: 2.5 MG, UNKNOWN
  4. APO-HALOPERIDOL [Concomitant]
     Dosage: 2 MG, QD
  5. APO-SERTRALINE [Concomitant]
     Dosage: 20 MG, QD
  6. BIPHENTIN [Concomitant]
     Dosage: 40 MG, QD
  7. CLONIDINE [Concomitant]
     Dosage: 25 UG, QD
  8. CLONIDINE [Concomitant]
     Dosage: 50 MG, QD
  9. FLOVENT HFA [Concomitant]
     Dosage: 250 UG, UNKNOWN
     Route: 055
  10. NASONEX [Concomitant]
     Dosage: 100 MG, QD
     Route: 045
  11. NASONEX [Concomitant]
     Dosage: 50 MG, QD
     Route: 045
  12. RATIO-SALBUTAMOL HFA [Concomitant]
     Dosage: 200 MG, UNKNOWN
     Route: 055
  13. RATIO-SALBUTAMOL HFA [Concomitant]
     Dosage: 100 MG, UNKNOWN
     Route: 055
  14. SEROQUEL XR [Concomitant]
     Dosage: 50 UG, UNKNOWN

REACTIONS (9)
  - Death [Fatal]
  - Dizziness [Unknown]
  - Dyspnoea [Unknown]
  - Dysstasia [Unknown]
  - Eye movement disorder [Unknown]
  - Gastric dilatation [Unknown]
  - Gastrointestinal sounds abnormal [Unknown]
  - Weight increased [Unknown]
  - Off label use [Unknown]
